FAERS Safety Report 10208771 (Version 4)
Quarter: 2020Q3

REPORT INFORMATION
  Report Type: Report from Study
  Country: US (occurrence: US)
  Receive Date: 20140530
  Receipt Date: 20140701
  Transmission Date: 20201105
  Serious: Yes (Hospitalization)
  Sender: FDA-Public Use
  Company Number: US-JNJFOC-20140517525

PATIENT
  Age: 61 Year
  Sex: Male
  Weight: 105 kg

DRUGS (25)
  1. MIRALAX [Concomitant]
     Active Substance: POLYETHYLENE GLYCOL 3350
     Route: 048
  2. IBRUTINIB [Suspect]
     Active Substance: IBRUTINIB
     Indication: B-CELL LYMPHOMA
     Route: 048
     Dates: start: 20140402, end: 20140420
  3. ACARBOSE. [Concomitant]
     Active Substance: ACARBOSE
     Indication: DIABETES MELLITUS
     Dosage: WITH MEALS
     Route: 048
  4. GLYBURIDE. [Concomitant]
     Active Substance: GLYBURIDE
     Indication: DIABETES MELLITUS
  5. MULTIVITAMINS [Concomitant]
     Active Substance: VITAMINS
     Route: 048
  6. TYLENOL [Concomitant]
     Active Substance: ACETAMINOPHEN
     Dosage: EVERY 8 HOURS AS NEEDED
  7. LORATADINE. [Concomitant]
     Active Substance: LORATADINE
  8. HYDROCODONE [Concomitant]
     Active Substance: HYDROCODONE
     Dosage: EVERY 6 HOURS AS NEEDED
  9. SENOKOT [Concomitant]
     Active Substance: SENNOSIDES
     Dosage: 1  ? 2 TABLETS, TWICE DAILY, AS NEEDED
     Route: 048
  10. HUMALOG [Concomitant]
     Active Substance: INSULIN LISPRO
     Route: 048
  11. LEVEMIR [Concomitant]
     Active Substance: INSULIN DETEMIR
     Route: 048
  12. PROTONIX [Concomitant]
     Active Substance: PANTOPRAZOLE SODIUM
     Route: 048
  13. DIGOXIN. [Concomitant]
     Active Substance: DIGOXIN
     Route: 048
  14. DIPHENHYDRAMINE. [Concomitant]
     Active Substance: DIPHENHYDRAMINE
     Dosage: EVERY 6 HOURS AS NEEDED.
     Route: 048
  15. ALBUTEROL. [Concomitant]
     Active Substance: ALBUTEROL
     Route: 048
  16. REGLAN [Concomitant]
     Active Substance: METOCLOPRAMIDE HYDROCHLORIDE
     Route: 048
  17. DILTIAZEM. [Concomitant]
     Active Substance: DILTIAZEM
     Route: 048
  18. SIMVASTATIN. [Concomitant]
     Active Substance: SIMVASTATIN
     Dosage: AT NIGHT
     Route: 048
  19. TRIMETHOPRIM. [Concomitant]
     Active Substance: TRIMETHOPRIM
  20. SULFAMETHOXAZOLE?TRIMETHOPRIM [Concomitant]
     Active Substance: SULFAMETHOXAZOLE\TRIMETHOPRIM
     Indication: PROPHYLAXIS
     Dosage: 800?160 MG, 1 TABLET ON M?W?F TO PREVENT PNEUMONIA
  21. IBRUTINIB [Suspect]
     Active Substance: IBRUTINIB
     Indication: B-CELL LYMPHOMA
     Route: 048
     Dates: start: 20140430, end: 20140613
  22. ACYCLOVIR. [Concomitant]
     Active Substance: ACYCLOVIR
     Route: 048
  23. LISINOPRIL. [Concomitant]
     Active Substance: LISINOPRIL
  24. COMPAZINE [Concomitant]
     Active Substance: PROCHLORPERAZINE MALEATE
  25. VIBRAMYCIN [Concomitant]
     Active Substance: DOXYCYCLINE
     Route: 048

REACTIONS (4)
  - Bacteraemia [Recovered/Resolved with Sequelae]
  - Small intestinal obstruction [Recovered/Resolved]
  - Pleural effusion [Recovered/Resolved]
  - Pericardial effusion [Recovered/Resolved]

NARRATIVE: CASE EVENT DATE: 20140524
